FAERS Safety Report 4851108-8 (Version None)
Quarter: 2005Q4

REPORT INFORMATION
  Report Type: 
  Country: None (occurrence: None)
  Receive Date: 20051130
  Receipt Date: 20050908
  Transmission Date: 20060501
  Serious: No
  Sender: FDA-Public Use
  Company Number: FABR-11232

PATIENT
  Age: 48 Year
  Sex: Male
  Weight: 75 kg

DRUGS (5)
  1. FABRAZYME [Suspect]
     Indication: FABRY'S DISEASE
     Dosage: 70 MG Q2WKS IV
     Route: 042
     Dates: start: 20030213, end: 20050813
  2. ACETAMINOPHEN [Concomitant]
  3. IBUPROFEN [Concomitant]
  4. ASPIRIN [Concomitant]
  5. ENALTEN [Concomitant]

REACTIONS (4)
  - AURICULAR SWELLING [None]
  - BURNING SENSATION [None]
  - ERYTHEMA [None]
  - FACE OEDEMA [None]
